FAERS Safety Report 22208385 (Version 1)
Quarter: 2023Q2

REPORT INFORMATION
  Report Type: Spontaneous
  Country: US (occurrence: US)
  Receive Date: 20230413
  Receipt Date: 20230413
  Transmission Date: 20230721
  Serious: Yes (Other)
  Sender: FDA-Public Use
  Company Number: US-ABBVIE-4726606

PATIENT
  Sex: Male

DRUGS (1)
  1. HUMIRA [Suspect]
     Active Substance: ADALIMUMAB
     Indication: Psoriatic arthropathy
     Dosage: START DATE TEXT: ABOUT 20 YEARS AGO
     Route: 058

REACTIONS (4)
  - Colon cancer [Recovered/Resolved]
  - Hypoacusis [Unknown]
  - Arthralgia [Unknown]
  - Visual impairment [Unknown]
